FAERS Safety Report 6824041-X (Version None)
Quarter: 2010Q3

REPORT INFORMATION
  Report Type: 
  Country: None (occurrence: None)
  Receive Date: 20100708
  Receipt Date: 20070109
  Transmission Date: 20110219
  Serious: Yes (Other)
  Sender: FDA-Public Use
  Company Number: US-PFIZER INC-2006114087

PATIENT
  Sex: Female
  Weight: 64 kg

DRUGS (12)
  1. CHANTIX [Suspect]
     Indication: SMOKING CESSATION THERAPY
     Dates: start: 20060905, end: 20070101
  2. MECLIZINE [Suspect]
     Indication: VERTIGO
     Dates: start: 20060905
  3. PLAVIX [Concomitant]
  4. ASPIRIN [Concomitant]
  5. TOPROL-XL [Concomitant]
  6. PREMARIN [Concomitant]
  7. KLONOPIN [Concomitant]
  8. LIPITOR [Concomitant]
  9. ALTACE [Concomitant]
  10. CLARITIN [Concomitant]
  11. ALBUTEROL [Concomitant]
  12. OXYCONTIN [Concomitant]

REACTIONS (5)
  - DIZZINESS [None]
  - DYSGEUSIA [None]
  - LOSS OF CONSCIOUSNESS [None]
  - NAUSEA [None]
  - SOMNOLENCE [None]
